FAERS Safety Report 6915919-7 (Version None)
Quarter: 2010Q3

REPORT INFORMATION
  Report Type: 
  Country: None (occurrence: None)
  Receive Date: 20100804
  Receipt Date: 20100722
  Transmission Date: 20110219
  Serious: Yes (Hospitalization, Disabling)
  Sender: FDA-Public Use
  Company Number: DSA_43597_2010

PATIENT
  Sex: Female

DRUGS (3)
  1. BUPROPION HCL [Suspect]
     Indication: DEPRESSION
     Dosage: 150 MG QD ORAL
     Route: 048
     Dates: start: 20091101, end: 20091201
  2. HALDOL [Suspect]
     Indication: TIC
     Dosage: 150MG QD ORAL
     Route: 048
     Dates: start: 20091101
  3. LEVOTHYROXINE SODIUM [Concomitant]

REACTIONS (5)
  - BIPOLAR DISORDER [None]
  - HYPOMANIA [None]
  - IMPAIRED WORK ABILITY [None]
  - OVERDOSE [None]
  - TIC [None]
